FAERS Safety Report 16324660 (Version 1)
Quarter: 2019Q2

REPORT INFORMATION
  Report Type: Spontaneous
  Country: US (occurrence: US)
  Receive Date: 20190516
  Receipt Date: 20190516
  Transmission Date: 20190711
  Serious: Yes (Hospitalization)
  Sender: FDA-Public Use
  Company Number: None

PATIENT
  Age: 72 Year
  Sex: Male
  Weight: 108 kg

DRUGS (22)
  1. PREDNISONE 10 MG DAILY [Concomitant]
  2. DUONEBS EVERY 6 HOURS AS NEEDED [Concomitant]
  3. FERROUS SULFATE 325 MG DAILY [Concomitant]
  4. LORAZEPAM 0.5 MG EVERY 8 HRS AS NEEDED [Concomitant]
  5. METOPROLOL 12.5 MG TWICE DAILY [Concomitant]
  6. ALBUTEROL INHALER 2 PUFFS DAILY AS NEEDED [Concomitant]
  7. GUAIFENESIN 600 MG TWICE DAILY [Concomitant]
  8. MIRALAX 17 GM DAILY [Concomitant]
  9. PANTOPRAZOLE 40 MG TWICE DAILY [Concomitant]
  10. BRIMONIDINE 0.1 %, 1 DROP BOTH EYES DAILY [Concomitant]
  11. RIVAROXABAN [Suspect]
     Active Substance: RIVAROXABAN
     Indication: PRODUCT USED FOR UNKNOWN INDICATION
     Route: 048
  12. ASPIRIN 81 MG EC DAILY [Concomitant]
  13. COSOPT 1 DROP BOTH EYES TWICE DAILY [Concomitant]
  14. DULOXETINE 60 MG DAILY [Concomitant]
  15. GABAPENTIN 100 MG TWICE DAILY [Concomitant]
  16. CALCIUM W/D 500/200 TWICE DAILY [Concomitant]
  17. HYDROCHLOROTHIAZIDE 25 MG DAILY [Concomitant]
  18. MULTIVITAMIN DAILY [Concomitant]
  19. SPIRIVA 18 MCG DAILY [Concomitant]
  20. SYMBICORT 80/4.5 2 PUFF TWICE DAILY [Concomitant]
  21. MILK OF MAG 30 ML DAILY AS NEEDED [Concomitant]
  22. PERCOCET 10/325 EVERY 6 HOURS AS NEEDED [Concomitant]

REACTIONS (4)
  - Lethargy [None]
  - Pallor [None]
  - Occult blood positive [None]
  - Asthenia [None]

NARRATIVE: CASE EVENT DATE: 20190429
